FAERS Safety Report 8491424-4 (Version None)
Quarter: 2012Q3

REPORT INFORMATION
  Report Type: 
  Country: None (occurrence: None)
  Receive Date: 20120706
  Receipt Date: 20120626
  Transmission Date: 20120928
  Serious: Yes (Hospitalization, Other)
  Sender: FDA-Public Use
  Company Number: OM-SANOFI-AVENTIS-2012SA038058

PATIENT
  Age: 54 Year
  Sex: Female

DRUGS (3)
  1. CEFUROXIME [Concomitant]
     Indication: PROPHYLAXIS
     Route: 042
     Dates: start: 20110912, end: 20110915
  2. DICLOFENAC SODIUM [Concomitant]
     Indication: ANTIINFLAMMATORY THERAPY
     Route: 030
     Dates: start: 20110912, end: 20110915
  3. ENOXAPARIN SODIUM [Suspect]
     Route: 065
     Dates: start: 20110913, end: 20110916

REACTIONS (2)
  - PROCEDURAL HAEMORRHAGE [None]
  - DEVICE RELATED INFECTION [None]
